FAERS Safety Report 21303674 (Version 1)
Quarter: 2022Q3

REPORT INFORMATION
  Report Type: Spontaneous
  Country: US (occurrence: None)
  Receive Date: 20220907
  Receipt Date: 20220907
  Transmission Date: 20221027
  Serious: Yes (Hospitalization)
  Sender: FDA-Public Use
  Company Number: None

PATIENT
  Age: 83 Year
  Sex: Male
  Weight: 80.74 kg

DRUGS (24)
  1. ABIRATERONE [Suspect]
     Active Substance: ABIRATERONE
     Indication: Prostate cancer
     Dosage: FREQUENCY : DAILY;?
     Route: 048
     Dates: start: 202204
  2. PREDNISONE [Suspect]
     Active Substance: PREDNISONE
     Indication: Prostate cancer
     Dosage: FREQUENCY : TWICE A DAY;?
     Route: 048
     Dates: start: 202204
  3. ABIRATERONE [Concomitant]
     Active Substance: ABIRATERONE
  4. ALBUTEROL [Concomitant]
     Active Substance: ALBUTEROL
  5. ALPHA LIPOIC ACID [Concomitant]
     Active Substance: .ALPHA.-LIPOIC ACID
  6. AMLODIPINE [Concomitant]
     Active Substance: AMLODIPINE BESYLATE
  7. AZITHROMYCIN [Concomitant]
     Active Substance: AZITHROMYCIN
  8. ASPIRIN [Concomitant]
     Active Substance: ASPIRIN
  9. CEFUROXIME [Concomitant]
     Active Substance: CEFUROXIME
  10. VITAMINS [Concomitant]
     Active Substance: VITAMINS
  11. FAMOTIDINE [Concomitant]
     Active Substance: FAMOTIDINE
  12. FENOPROFEN [Concomitant]
     Active Substance: FENOPROFEN
  13. FERROUS SULFATE [Concomitant]
     Active Substance: FERROUS SULFATE
  14. FIRMAGON [Concomitant]
     Active Substance: DEGARELIX ACETATE
  15. HUMALOG [Concomitant]
     Active Substance: INSULIN LISPRO
  16. LISINOPRIL [Concomitant]
     Active Substance: LISINOPRIL
  17. METOPROLOL [Concomitant]
     Active Substance: METOPROLOL
  18. NOVOLIN NOS [Concomitant]
     Active Substance: INSULIN HUMAN
  19. NOVOLOG [Concomitant]
     Active Substance: INSULIN ASPART
  20. OXYCODONE [Concomitant]
     Active Substance: OXYCODONE
  21. PREDNISONE [Concomitant]
     Active Substance: PREDNISONE
  22. SIMVASTATIN [Concomitant]
     Active Substance: SIMVASTATIN
  23. VITAMIN D3 [Concomitant]
     Active Substance: CHOLECALCIFEROL
  24. SYMBICORT [Concomitant]
     Active Substance: BUDESONIDE\FORMOTEROL FUMARATE DIHYDRATE

REACTIONS (2)
  - Hypophagia [None]
  - Asthenia [None]

NARRATIVE: CASE EVENT DATE: 20220906
